FAERS Safety Report 9485497 (Version 1)
Quarter: 2013Q3

REPORT INFORMATION
  Report Type: Spontaneous
  Country: US (occurrence: US)
  Receive Date: 20130829
  Receipt Date: 20130829
  Transmission Date: 20140515
  Serious: No
  Sender: FDA-Public Use
  Company Number: US-BIOGENIDEC-2013BI081648

PATIENT
  Age: 64 Year
  Sex: Male

DRUGS (20)
  1. AVONEX [Suspect]
     Indication: MULTIPLE SCLEROSIS
     Route: 030
     Dates: start: 20100901, end: 20130821
  2. ACIPHEX [Concomitant]
  3. AMIODARONE [Concomitant]
  4. AMPYRA [Concomitant]
  5. ATENOLOL [Concomitant]
  6. CRESLOR [Concomitant]
  7. CYCLOBENZAPRINE [Concomitant]
  8. ENABLEX [Concomitant]
  9. LISINIPRIL [Concomitant]
  10. NABURNETONE [Concomitant]
  11. SOLUINEDROL INFUSION [Concomitant]
  12. ASPIRIN [Concomitant]
  13. CALCIUM [Concomitant]
  14. VITAMIN B12 [Concomitant]
  15. VITAMIN D1 [Concomitant]
  16. FISH OIL [Concomitant]
  17. NIASPAN [Concomitant]
  18. PLAVIX [Concomitant]
  19. SETRALINE [Concomitant]
  20. NITROSTAT [Concomitant]

REACTIONS (1)
  - Enzyme level increased [Not Recovered/Not Resolved]
